FAERS Safety Report 6731216-7 (Version None)
Quarter: 2010Q2

REPORT INFORMATION
  Report Type: 
  Country: None (occurrence: None)
  Receive Date: 20100517
  Receipt Date: 20100517
  Transmission Date: 20101027
  Serious: Yes (Hospitalization)
  Sender: FDA-Public Use
  Company Number: None

PATIENT

DRUGS (1)
  1. OMEGA-3-ACID ETHYL ESTERS [Suspect]
     Dosage: 1000 MG 3 X PER DAY PO
     Route: 048

REACTIONS (1)
  - FOOD ALLERGY [None]
